FAERS Safety Report 8245175-1 (Version None)
Quarter: 2012Q1

REPORT INFORMATION
  Report Type: 
  Country: None (occurrence: None)
  Receive Date: 20120329
  Receipt Date: 20120326
  Transmission Date: 20120608
  Serious: No
  Sender: FDA-Public Use
  Company Number: US-BAYER-2012-030603

PATIENT
  Age: 87 Year
  Sex: Female
  Weight: 70 kg

DRUGS (8)
  1. METOPROLOL SUCCINATE [Concomitant]
  2. ENALAPRIL [Concomitant]
  3. MULTI-VITAMIN [Concomitant]
  4. CALCIUM CARBONATE [Concomitant]
  5. ASPIRIN [Concomitant]
     Dosage: QD
     Route: 048
  6. ALEVE (CAPLET) [Suspect]
     Dosage: 2 DF, QD
     Dates: start: 20120201
  7. IRON SUPPLEMENT [Concomitant]
  8. HYDROCHLOROTHIAZIDE [Concomitant]

REACTIONS (1)
  - DECREASED APPETITE [None]
